FAERS Safety Report 9157928 (Version 1)
Quarter: 2013Q1

REPORT INFORMATION
  Report Type: Spontaneous
  Country: US (occurrence: US)
  Receive Date: 20130312
  Receipt Date: 20130312
  Transmission Date: 20140127
  Serious: Yes (Hospitalization, Other)
  Sender: FDA-Public Use
  Company Number: US-009507513-2011SP001281

PATIENT
  Sex: Female
  Weight: 88.45 kg

DRUGS (9)
  1. NUVARING [Suspect]
     Indication: CONTRACEPTION
     Route: 067
     Dates: start: 20080724, end: 20080905
  2. NUVARING [Suspect]
     Indication: MENSTRUAL CYCLE MANAGEMENT
  3. PROPRANOLOL HYDROCHLORIDE [Concomitant]
     Indication: CARDIAC DISORDER
     Dosage: 20 MG, QD
     Dates: start: 20080724
  4. LEVOTHYROXINE SODIUM [Concomitant]
     Indication: HYPOTHYROIDISM
     Dosage: 50 ?G, QD
     Dates: start: 20080724
  5. SEROQUEL [Concomitant]
     Indication: MENTAL DISORDER
     Dosage: 200 MG, QD
     Dates: start: 20080724
  6. MIRTAZAPINE [Concomitant]
     Indication: MENTAL DISORDER
     Dosage: 15 MG, QD
     Dates: start: 20080724
  7. ZYPREXA [Concomitant]
     Indication: MENTAL DISORDER
     Dosage: 5 MG, QD
     Dates: start: 20080726
  8. DIAZEPAM [Concomitant]
     Indication: ANXIETY
     Dosage: 5 MG, QD
     Dates: start: 20080728
  9. LYRICA [Concomitant]
     Indication: NERVE INJURY
     Dosage: 75 MG, QD
     Dates: start: 20080805

REACTIONS (7)
  - Hypercoagulation [Unknown]
  - Hepatic steatosis [Unknown]
  - Pulmonary embolism [Recovered/Resolved]
  - Mental disorder [Unknown]
  - Anxiety [Unknown]
  - Tendonitis [Unknown]
  - Oedema peripheral [Unknown]
